FAERS Safety Report 8916478 (Version 1)
Quarter: 2012Q4

REPORT INFORMATION
  Report Type: 
  Country: US (occurrence: US)
  Receive Date: 20121120
  Receipt Date: 20121120
  Transmission Date: 20130627
  Serious: No
  Sender: FDA-Public Use
  Company Number: US-ASTRAZENECA-2012SE84645

PATIENT
  Age: 51 Year
  Sex: Female

DRUGS (1)
  1. SYMBICORT PMDI [Suspect]
     Dosage: Dosage and frequency unknown.
     Route: 055

REACTIONS (4)
  - Hypersensitivity [Unknown]
  - Throat tightness [Unknown]
  - Rash [Unknown]
  - Pruritus generalised [Unknown]
